FAERS Safety Report 4969939-2 (Version None)
Quarter: 2006Q1

REPORT INFORMATION
  Report Type: 
  Country: None (occurrence: None)
  Receive Date: 20060202
  Receipt Date: 20050106
  Transmission Date: 20060701
  Serious: Yes (Other)
  Sender: FDA-Public Use
  Company Number: PHEH2005US00623

PATIENT

DRUGS (1)
  1. RITALIN LA [Suspect]
     Dosage: 30 MG, ORAL
     Route: 048

REACTIONS (1)
  - PSYCHOTIC DISORDER [None]
